FAERS Safety Report 10421085 (Version 2)
Quarter: 2014Q4

REPORT INFORMATION
  Report Type: Spontaneous
  Country: US (occurrence: None)
  Receive Date: 20140722
  Receipt Date: 20141121
  Transmission Date: 20150528
  Serious: No
  Sender: FDA-Public Use
  Company Number: 163-10004-14054107

PATIENT
  Age: 46 Year
  Sex: Female

DRUGS (4)
  1. EFFEXOR (VENLAFAXINE HYDROCHLORIDE) (SUSTAINED-RELEASE CAPSULE) [Concomitant]
  2. LOSARTAN [Concomitant]
     Active Substance: LOSARTAN
  3. TAMOXIFEN [Concomitant]
     Active Substance: TAMOXIFEN
  4. OTEZLA [Suspect]
     Active Substance: APREMILAST
     Indication: PSORIATIC ARTHROPATHY
     Route: 048
     Dates: start: 20140508

REACTIONS (5)
  - Gastric disorder [None]
  - Asthenia [None]
  - Arthralgia [None]
  - Myalgia [None]
  - Diarrhoea [None]

NARRATIVE: CASE EVENT DATE: 20140510
